FAERS Safety Report 19728634 (Version 1)
Quarter: 2021Q3

REPORT INFORMATION
  Report Type: Spontaneous
  Country: FR (occurrence: FR)
  Receive Date: 20210820
  Receipt Date: 20210820
  Transmission Date: 20211014
  Serious: Yes (Death)
  Sender: FDA-Public Use
  Company Number: FR-PURDUE-USA-2021-0282191

PATIENT
  Age: 34 Year
  Sex: Male

DRUGS (7)
  1. OXAZEPAM. [Suspect]
     Active Substance: OXAZEPAM
     Indication: PRODUCT USED FOR UNKNOWN INDICATION
     Dosage: UNK [INCONNUE]
     Route: 065
     Dates: end: 202010
  2. BUPRENORPHINE. [Suspect]
     Active Substance: BUPRENORPHINE
     Indication: PRODUCT SUBSTITUTION
     Dosage: UNK [INCONNUE]
     Route: 065
     Dates: end: 202010
  3. BROMAZEPAM [Suspect]
     Active Substance: BROMAZEPAM
     Indication: PRODUCT USED FOR UNKNOWN INDICATION
     Dosage: UNK [INCONNUE]
     Route: 065
     Dates: end: 202010
  4. CYAMEMAZINE [Suspect]
     Active Substance: CYAMEMAZINE
     Indication: PRODUCT USED FOR UNKNOWN INDICATION
     Dosage: UNK [INCONNUE]
     Route: 065
     Dates: end: 202010
  5. MORPHINE SULFATE (SIMILAR TO NDA 19?516) [Suspect]
     Active Substance: MORPHINE SULFATE
     Indication: PRODUCT USED FOR UNKNOWN INDICATION
     Dosage: UNK [INCONNUE]
     Route: 065
     Dates: end: 202010
  6. METHADONE [Suspect]
     Active Substance: METHADONE HYDROCHLORIDE
     Indication: PRODUCT SUBSTITUTION
     Dosage: UNK [INCONNUE]
     Route: 065
     Dates: end: 202010
  7. ALPRAZOLAM. [Suspect]
     Active Substance: ALPRAZOLAM
     Indication: PRODUCT USED FOR UNKNOWN INDICATION
     Dosage: UNK [INCONNUE]
     Route: 065
     Dates: end: 202010

REACTIONS (4)
  - Asphyxia [Fatal]
  - Drug abuse [Fatal]
  - Pulmonary oedema [Fatal]
  - Brain oedema [Fatal]

NARRATIVE: CASE EVENT DATE: 202010
